FAERS Safety Report 6759217-3 (Version None)
Quarter: 2010Q2

REPORT INFORMATION
  Report Type: 
  Country: None (occurrence: None)
  Receive Date: 20100607
  Receipt Date: 20100526
  Transmission Date: 20101027
  Serious: Yes (Other)
  Sender: FDA-Public Use
  Company Number: CA-PFIZER INC-2010068090

PATIENT
  Age: 20 Year
  Sex: Male

DRUGS (1)
  1. ZELDOX [Suspect]
     Indication: AFFECTIVE DISORDER
     Dosage: 40 MG, 2X/DAY

REACTIONS (7)
  - DIZZINESS [None]
  - DYSKINESIA [None]
  - DYSPHONIA [None]
  - DYSPNOEA [None]
  - FATIGUE [None]
  - SWOLLEN TONGUE [None]
  - TONGUE DISCOLOURATION [None]
